FAERS Safety Report 23633972 (Version 10)
Quarter: 2024Q3

REPORT INFORMATION
  Report Type: Report from Study
  Country: CA (occurrence: CA)
  Receive Date: 20240314
  Receipt Date: 20240823
  Transmission Date: 20241017
  Serious: Yes (Hospitalization, Other)
  Sender: IPSEN
  Company Number: CA-KOREA IPSEN Pharma-2023-16715

PATIENT
  Age: 75 Year
  Sex: Male

DRUGS (22)
  1. LANREOTIDE ACETATE [Suspect]
     Active Substance: LANREOTIDE ACETATE
     Indication: Gastroenteropancreatic neuroendocrine tumour disease
     Route: 058
     Dates: start: 20230605, end: 2023
  2. LANREOTIDE ACETATE [Suspect]
     Active Substance: LANREOTIDE ACETATE
     Route: 058
     Dates: start: 2023
  3. ADVAIR HFA [Concomitant]
     Active Substance: FLUTICASONE PROPIONATE\SALMETEROL XINAFOATE
  4. INCRUSE ELLIPTA [Concomitant]
     Active Substance: UMECLIDINIUM BROMIDE
  5. MONTELUKAST [Concomitant]
     Active Substance: MONTELUKAST SODIUM
  6. ELIQUIS [Concomitant]
     Active Substance: APIXABAN
  7. CORTEF [Concomitant]
     Active Substance: HYDROCORTISONE
  8. CALCIUM [Concomitant]
     Active Substance: CALCIUM
  9. SYNTHROID [Concomitant]
     Active Substance: LEVOTHYROXINE SODIUM
     Dosage: 112 MCG PO QAM
     Route: 048
  10. ROSUVASTATIN [Concomitant]
     Active Substance: ROSUVASTATIN\ROSUVASTATIN CALCIUM
  11. LUX-A-DAY [Concomitant]
  12. FOLIC ACID [Concomitant]
     Active Substance: FOLIC ACID
  13. VITAMIN C [Concomitant]
     Active Substance: ASCORBIC ACID
  14. PANTOPRAZOLE [Concomitant]
     Active Substance: PANTOPRAZOLE
  15. TAMSULOSIN [Concomitant]
     Active Substance: TAMSULOSIN
  16. FERROURS SULFATE [Concomitant]
  17. PERINDOPRIL [Concomitant]
     Active Substance: PERINDOPRIL
     Dosage: 2MG PO QDAY
     Route: 048
  18. TELUKAST [Concomitant]
  19. METFORMIN [Concomitant]
     Active Substance: METFORMIN HYDROCHLORIDE
     Dosage: 1000MG PO BID
     Route: 048
  20. AMLODIPINE [Concomitant]
     Active Substance: AMLODIPINE BESYLATE
     Dosage: 5MG PO BID
     Route: 048
  21. BISOPROLOL [Concomitant]
     Active Substance: BISOPROLOL\BISOPROLOL FUMARATE
     Dosage: 2.5MG PO DIE
     Route: 048
  22. MAGNESIUM [Concomitant]
     Active Substance: MAGNESIUM
     Dosage: 250MG PO DIE
     Route: 048

REACTIONS (19)
  - Blood pressure increased [Recovering/Resolving]
  - Hospitalisation [Unknown]
  - Pneumonia [Unknown]
  - Heart rate increased [Recovering/Resolving]
  - Blood glucose increased [Unknown]
  - Malaise [Not Recovered/Not Resolved]
  - Bacterial test positive [Unknown]
  - Flatulence [Not Recovered/Not Resolved]
  - Influenza [Recovering/Resolving]
  - Nasal congestion [Recovering/Resolving]
  - Respiratory tract infection [Recovered/Resolved]
  - Therapeutic product ineffective [Unknown]
  - Frequent bowel movements [Recovered/Resolved]
  - Faeces soft [Recovered/Resolved]
  - Mucous stools [Recovered/Resolved]
  - Frequent bowel movements [Recovered/Resolved]
  - Diarrhoea [Recovered/Resolved]
  - Abnormal faeces [Recovered/Resolved]
  - Blood test abnormal [Unknown]

NARRATIVE: CASE EVENT DATE: 20230605
